FAERS Safety Report 5228881-2 (Version None)
Quarter: 2007Q1

REPORT INFORMATION
  Report Type: 
  Country: None (occurrence: None)
  Receive Date: 20070131
  Receipt Date: 20060712
  Transmission Date: 20070707
  Serious: Yes (Death, Hospitalization)
  Sender: FDA-Public Use
  Company Number: 163-C5013-06070409

PATIENT
  Age: 62 Year
  Sex: Male
  Weight: 101.1521 kg

DRUGS (16)
  1. CC-5013 (LENALIDOMIDE) (CAPSULES) [Suspect]
     Indication: MULTIPLE MYELOMA
     Dosage: 15 MG, DAILY, ORAL
     Route: 048
     Dates: start: 20040308, end: 20060712
  2. DEXAMETHASONE TAB [Suspect]
     Indication: MULTIPLE MYELOMA
     Dates: start: 20060308, end: 20060712
  3. DITROPAN [Concomitant]
  4. LEXAPRO [Concomitant]
  5. CELEBREX [Concomitant]
  6. NEURONTIN [Concomitant]
  7. MULTIVITAMIN [Concomitant]
  8. ZOMETA [Concomitant]
  9. VALTREX (VALACICLOVIR HYROCHLORIDE) [Concomitant]
  10. SENNA (SENNA) [Concomitant]
  11. FLORINEF [Concomitant]
  12. PATANOL [Concomitant]
  13. HYDROCORTISONE [Concomitant]
  14. IMODIUM [Concomitant]
  15. MAGNESIUM (MAGNESIUM) [Concomitant]
  16. SIMETHICONE (DIMETICONE, ACTIVATED) [Concomitant]

REACTIONS (3)
  - ASTHENIA [None]
  - BONE PAIN [None]
  - FATIGUE [None]
